FAERS Safety Report 9347935 (Version 1)
Quarter: 2013Q2

REPORT INFORMATION
  Report Type: Spontaneous
  Country: US (occurrence: None)
  Receive Date: 20130612
  Receipt Date: 20130612
  Transmission Date: 20140414
  Serious: Yes (Other)
  Sender: FDA-Public Use
  Company Number: None

PATIENT
  Age: 50 Year
  Sex: Female

DRUGS (1)
  1. AZITHROMYCIN [Suspect]
     Indication: UPPER RESPIRATORY TRACT INFECTION
     Dosage: 500 MG ON DAY 1
     Route: 048

REACTIONS (7)
  - Pyrexia [None]
  - Eye pain [None]
  - Eye irritation [None]
  - Eye ulcer [None]
  - Mouth ulceration [None]
  - Stomatitis [None]
  - Oral pain [None]
